FAERS Safety Report 24796942 (Version 1)
Quarter: 2025Q1

REPORT INFORMATION
  Report Type: Spontaneous
  Country: FR (occurrence: FR)
  Receive Date: 20250101
  Receipt Date: 20250101
  Transmission Date: 20250409
  Serious: No
  Sender: NOVARTIS
  Company Number: FR-002147023-NVSC2024FR246838

PATIENT

DRUGS (1)
  1. COSENTYX [Suspect]
     Active Substance: SECUKINUMAB
     Indication: Product used for unknown indication
     Route: 065
     Dates: start: 202310

REACTIONS (5)
  - Gastrointestinal pain [Unknown]
  - Skin plaque [Unknown]
  - Nasal discomfort [Unknown]
  - Infection [Unknown]
  - Fungal infection [Unknown]
